FAERS Safety Report 11942178 (Version 2)
Quarter: 2016Q1

REPORT INFORMATION
  Report Type: Report from Study
  Country: GB (occurrence: GB)
  Receive Date: 20160125
  Receipt Date: 20160201
  Transmission Date: 20160526
  Serious: Yes (Other)
  Sender: FDA-Public Use
  Company Number: GB-ROCHE-1698824

PATIENT
  Age: 80 Year
  Sex: Male

DRUGS (8)
  1. DUOTRAV [Concomitant]
     Active Substance: TIMOLOL MALEATE\TRAVOPROST
     Route: 065
     Dates: start: 20151014
  2. RANIBIZUMAB [Suspect]
     Active Substance: RANIBIZUMAB
     Indication: AGE-RELATED MACULAR DEGENERATION
     Dosage: IN RIGHT EYE
     Route: 065
     Dates: start: 20081212
  3. RANIBIZUMAB [Suspect]
     Active Substance: RANIBIZUMAB
     Dosage: IN RIGHT EYE
     Route: 065
     Dates: start: 20151212
  4. BENDROFLUMETHIAZIDE [Concomitant]
     Active Substance: BENDROFLUMETHIAZIDE
     Route: 065
     Dates: start: 20100303
  5. EZETIMIBE. [Concomitant]
     Active Substance: EZETIMIBE
     Route: 065
     Dates: start: 20100210
  6. CARBIMAZOLE [Concomitant]
     Active Substance: CARBIMAZOLE
     Route: 065
     Dates: start: 20051003
  7. AMLODIPINE [Concomitant]
     Active Substance: AMLODIPINE BESYLATE
     Route: 065
     Dates: start: 20051230
  8. PRESERVISION [Concomitant]
     Active Substance: MINERALS\VITAMINS
     Route: 065
     Dates: start: 20090813

REACTIONS (3)
  - Intraocular pressure increased [Recovered/Resolved]
  - Blindness [Recovered/Resolved]
  - Hyalosis asteroid [Unknown]

NARRATIVE: CASE EVENT DATE: 20151014
